FAERS Safety Report 11465866 (Version 1)
Quarter: 2015Q3

REPORT INFORMATION
  Report Type: Spontaneous
  Country: US (occurrence: US)
  Receive Date: 20150907
  Receipt Date: 20150907
  Transmission Date: 20151125
  Serious: No
  Sender: FDA-Public Use
  Company Number: US-BAYER-2015-415386

PATIENT
  Age: 66 Year
  Sex: Female
  Weight: 113.38 kg

DRUGS (1)
  1. OXYTROL FOR WOMEN [Suspect]
     Active Substance: OXYBUTYNIN
     Indication: HYPERTONIC BLADDER
     Dosage: 1 DF, PRN
     Route: 061
     Dates: start: 20141216

REACTIONS (1)
  - Product use issue [None]

NARRATIVE: CASE EVENT DATE: 20150831
